FAERS Safety Report 6956197-2 (Version None)
Quarter: 2010Q3

REPORT INFORMATION
  Report Type: 
  Country: None (occurrence: None)
  Receive Date: 20100830
  Receipt Date: 20100825
  Transmission Date: 20110219
  Serious: Yes (Death, Hospitalization)
  Sender: FDA-Public Use
  Company Number: US-ASTRAZENECA-2010SE33769

PATIENT
  Age: 56 Year
  Sex: Female

DRUGS (2)
  1. SEROQUEL [Suspect]
     Indication: DEPRESSION
     Route: 048
  2. SEROQUEL [Suspect]
     Route: 048

REACTIONS (3)
  - COMPLETED SUICIDE [None]
  - DEHYDRATION [None]
  - MULTIPLE DRUG OVERDOSE [None]
